FAERS Safety Report 4609813-4 (Version None)
Quarter: 2005Q1

REPORT INFORMATION
  Report Type: 
  Country: None (occurrence: None)
  Receive Date: 20050316
  Receipt Date: 20050307
  Transmission Date: 20050727
  Serious: Yes (Death)
  Sender: FDA-Public Use
  Company Number: US-JNJFOC-20050206494

PATIENT
  Age: 42 Year
  Sex: Male
  Weight: 96.62 kg

DRUGS (1)
  1. FENTANYL [Suspect]
     Indication: DRUG USE FOR UNKNOWN INDICATION
     Route: 065

REACTIONS (9)
  - ACCIDENTAL DEATH [None]
  - ATHEROSCLEROSIS [None]
  - CARDIOMEGALY [None]
  - DRUG SCREEN POSITIVE [None]
  - DRUG TOXICITY [None]
  - GASTRITIS HAEMORRHAGIC [None]
  - HEPATIC STEATOSIS [None]
  - PULMONARY CONGESTION [None]
  - SPLEEN CONGESTION [None]
